FAERS Safety Report 8428181 (Version 3)
Quarter: 2023Q1

REPORT INFORMATION
  Report Type: Spontaneous
  Country: US (occurrence: None)
  Receive Date: 20120227
  Receipt Date: 20230123
  Transmission Date: 20230417
  Serious: Yes (Hospitalization, Other)
  Sender: FDA-Public Use
  Company Number: US-ROCHE-1042035

PATIENT
  Age: 51 Year
  Sex: Female
  Weight: 88.530 kg

DRUGS (2)
  1. BONIVA [Suspect]
     Active Substance: IBANDRONATE SODIUM
     Indication: Osteoporosis
     Route: 048
     Dates: start: 20060303, end: 20100524
  2. FOSAMAX [Suspect]
     Active Substance: ALENDRONATE SODIUM
     Indication: Osteoporosis
     Route: 065
     Dates: start: 2001, end: 200605

REACTIONS (11)
  - Stress fracture [Unknown]
  - Low turnover osteopathy [Unknown]
  - Emotional distress [Unknown]
  - Anxiety [Unknown]
  - Osteoarthritis [Unknown]
  - Back pain [Unknown]
  - Restless legs syndrome [Unknown]
  - Atrophic vulvovaginitis [Unknown]
  - Ear infection [Unknown]
  - Fatigue [Unknown]
  - Dysuria [Unknown]

NARRATIVE: CASE EVENT DATE: 20060518
